FAERS Safety Report 8883911 (Version 2)
Quarter: 2013Q1

REPORT INFORMATION
  Report Type: Spontaneous
  Country: US (occurrence: US)
  Receive Date: 20121102
  Receipt Date: 20130122
  Transmission Date: 20140127
  Serious: Yes (Hospitalization)
  Sender: FDA-Public Use
  Company Number: US-B.I. PHARMACEUTICALS,INC./RIDGEFIELD-2012-BP-26915BP

PATIENT
  Sex: Male

DRUGS (6)
  1. SPIRIVA [Suspect]
     Indication: CHRONIC OBSTRUCTIVE PULMONARY DISEASE
     Dosage: 18 MCG
     Route: 055
     Dates: start: 201102
  2. SPIRIVA [Suspect]
     Route: 048
     Dates: start: 20121030, end: 20121030
  3. PRAVASTATIN [Concomitant]
     Dosage: 180 MG
     Route: 048
  4. LEVOTHYROXINE [Concomitant]
     Dosage: 88 MCG
     Route: 048
  5. WARFARIN [Concomitant]
     Dosage: 1 MG
     Route: 048
  6. ASPIRIN [Concomitant]
     Dosage: 162 MG
     Route: 048

REACTIONS (3)
  - Heart valve incompetence [Recovered/Resolved]
  - Dizziness [Recovered/Resolved]
  - Incorrect route of drug administration [Recovered/Resolved]
